FAERS Safety Report 9994970 (Version 1)
Quarter: 2014Q1

REPORT INFORMATION
  Report Type: Spontaneous
  Country: US (occurrence: None)
  Receive Date: 20140307
  Receipt Date: 20140307
  Transmission Date: 20141002
  Serious: Yes (Other)
  Sender: FDA-Public Use
  Company Number: None

PATIENT
  Age: 82 Year
  Sex: Female
  Weight: 63.5 kg

DRUGS (6)
  1. CELEBREX [Suspect]
     Indication: ARTHRITIS
     Route: 048
     Dates: start: 20141029, end: 201411
  2. WARFARIN [Concomitant]
  3. PREDNISONE [Concomitant]
  4. FUROSEMIDE [Concomitant]
  5. POTASSIUM [Suspect]
  6. 1X DAY VITAMINS [Concomitant]

REACTIONS (3)
  - Pain in extremity [None]
  - Anaemia [None]
  - Ulcer [None]
